FAERS Safety Report 23692618 (Version 1)
Quarter: 2024Q1

REPORT INFORMATION
  Report Type: Spontaneous
  Country: US (occurrence: None)
  Receive Date: 20240330
  Receipt Date: 20240330
  Transmission Date: 20240410
  Serious: Yes (Death, Hospitalization)
  Sender: FDA-Public Use
  Company Number: None

PATIENT
  Age: 65 Year
  Sex: Male

DRUGS (1)
  1. LENALIDOMIDE [Suspect]
     Active Substance: LENALIDOMIDE
     Indication: Plasma cell myeloma
     Dosage: 25MG QD ORAL?
     Dates: start: 20240205, end: 20240305

REACTIONS (6)
  - Respiratory failure [None]
  - Diarrhoea [None]
  - Hypovolaemia [None]
  - Hyponatraemia [None]
  - Metastases to spine [None]
  - Staphylococcal bacteraemia [None]

NARRATIVE: CASE EVENT DATE: 20240215
